FAERS Safety Report 17983106 (Version 1)
Quarter: 2020Q3

REPORT INFORMATION
  Report Type: Spontaneous
  Country: CA (occurrence: CA)
  Receive Date: 20200703
  Receipt Date: 20200703
  Transmission Date: 20201103
  Serious: Yes (Disabling)
  Sender: FDA-Public Use
  Company Number: None

PATIENT
  Age: 37 Year
  Sex: Female
  Weight: 74.25 kg

DRUGS (2)
  1. CIPROFLOXACIN. [Suspect]
     Active Substance: CIPROFLOXACIN
     Indication: URINARY TRACT INFECTION
     Dosage: ?          QUANTITY:5 CAPSULE(S);?
     Route: 048
     Dates: start: 20200625, end: 20200627
  2. MULTIVITAMIN WITH IRON FOR WOMEN [Concomitant]

REACTIONS (9)
  - Toxicity to various agents [None]
  - Tendon pain [None]
  - Pain [None]
  - Peripheral swelling [None]
  - Blood magnesium decreased [None]
  - Emotional distress [None]
  - Myalgia [None]
  - Drug ineffective [None]
  - Pain in extremity [None]

NARRATIVE: CASE EVENT DATE: 20200627
